FAERS Safety Report 4895614-9 (Version None)
Quarter: 2006Q1

REPORT INFORMATION
  Report Type: 
  Country: None (occurrence: None)
  Receive Date: 20060125
  Receipt Date: 20060109
  Transmission Date: 20060701
  Serious: No
  Sender: FDA-Public Use
  Company Number: TPA2006A00060

PATIENT
  Age: 57 Year
  Sex: Female

DRUGS (1)
  1. ACTOS [Suspect]
     Indication: DIABETES MELLITUS
     Dosage: 30 MG, 1 IN 1 D, PER ORAL
     Route: 048

REACTIONS (1)
  - DRUG DISPENSING ERROR [None]
